FAERS Safety Report 17304998 (Version 3)
Quarter: 2020Q1

REPORT INFORMATION
  Report Type: Spontaneous
  Country: US (occurrence: US)
  Receive Date: 20200123
  Receipt Date: 20200213
  Transmission Date: 20200409
  Serious: Yes (Hospitalization, Other)
  Sender: FDA-Public Use
  Company Number: US-PFIZER INC-2020030002

PATIENT
  Age: 79 Year
  Sex: Female
  Weight: 58 kg

DRUGS (1)
  1. XELJANZ XR [Suspect]
     Active Substance: TOFACITINIB CITRATE
     Indication: RHEUMATOID ARTHRITIS
     Dosage: 11 MG, 1X/DAY
     Route: 048
     Dates: start: 2019, end: 202001

REACTIONS (9)
  - Cardiac failure congestive [Unknown]
  - Urinary tract infection [Recovered/Resolved]
  - Nervousness [Unknown]
  - Oral mucosal blistering [Unknown]
  - Pneumonia [Recovered/Resolved]
  - Drug hypersensitivity [Recovered/Resolved]
  - Tongue disorder [Unknown]
  - Swelling [Unknown]
  - Feeling jittery [Unknown]

NARRATIVE: CASE EVENT DATE: 2019
